FAERS Safety Report 6021450-6 (Version None)
Quarter: 2008Q4

REPORT INFORMATION
  Report Type: 
  Country: None (occurrence: None)
  Receive Date: 20081229
  Receipt Date: 20081216
  Transmission Date: 20090506
  Serious: Yes (Hospitalization, Other)
  Sender: FDA-Public Use
  Company Number: AU-AVENTIS-200821795GDDC

PATIENT
  Age: 70 Year
  Sex: Female

DRUGS (9)
  1. ARAVA [Suspect]
     Indication: RHEUMATOID ARTHRITIS
     Route: 048
     Dates: start: 20080624
  2. OMEPRAZOLE [Suspect]
     Route: 048
  3. BENDROFLUMETHIAZIDE [Concomitant]
     Route: 048
  4. BETALOC [Concomitant]
     Indication: HYPERTENSION
     Route: 048
  5. MULTI-VITAMINS [Concomitant]
     Route: 048
  6. SLOW-K [Concomitant]
     Route: 048
  7. PREDNISONE [Concomitant]
     Route: 048
  8. CALCIUM CARBONATE [Concomitant]
     Route: 048
  9. FLAX OIL [Concomitant]
     Route: 048

REACTIONS (1)
  - CHOLECYSTITIS [None]
